FAERS Safety Report 6097955-9 (Version None)
Quarter: 2009Q1

REPORT INFORMATION
  Report Type: 
  Country: None (occurrence: None)
  Receive Date: 20090227
  Receipt Date: 20090224
  Transmission Date: 20090719
  Serious: Yes (Disabling)
  Sender: FDA-Public Use
  Company Number: JP-ASTRAZENECA-2009AP01168

PATIENT
  Age: 83 Year
  Sex: Male

DRUGS (5)
  1. ZOLADEX [Suspect]
     Indication: PROSTATE CANCER
     Route: 058
     Dates: start: 20080501
  2. CASODEX [Suspect]
     Indication: PROSTATE CANCER
     Route: 048
     Dates: start: 20080501, end: 20090210
  3. GENINAX [Suspect]
     Route: 048
     Dates: start: 20090207, end: 20090210
  4. NORVASC [Concomitant]
     Indication: HYPERTENSION
     Route: 048
  5. ZANTAC [Concomitant]
     Route: 048

REACTIONS (1)
  - INTERSTITIAL LUNG DISEASE [None]
